FAERS Safety Report 10073956 (Version 1)
Quarter: 2014Q2

REPORT INFORMATION
  Report Type: Spontaneous
  Country: RU (occurrence: RU)
  Receive Date: 20140412
  Receipt Date: 20140412
  Transmission Date: 20141212
  Serious: Yes (Other)
  Sender: FDA-Public Use
  Company Number: PHHY2014RU044128

PATIENT
  Age: 60 Year
  Sex: Male

DRUGS (1)
  1. EXELON [Suspect]
     Dosage: 9.5 MG, UNK
     Route: 062

REACTIONS (1)
  - Suicide attempt [Unknown]
